FAERS Safety Report 4578093-0 (Version None)
Quarter: 2005Q1

REPORT INFORMATION
  Report Type: 
  Country: None (occurrence: None)
  Receive Date: 20050202
  Receipt Date: 20050202
  Transmission Date: 20050727
  Serious: Yes (Other)
  Sender: FDA-Public Use
  Company Number: None

PATIENT
  Sex: Female

DRUGS (1)
  1. OXYCODONE AND ACETAMINOPHEN [Suspect]
     Indication: AFTERBIRTH PAIN
     Dosage: PO 2 Q 4 HRS
     Route: 048
     Dates: start: 20040314, end: 20040314

REACTIONS (1)
  - PRURITUS GENERALISED [None]
